FAERS Safety Report 11931453 (Version 1)
Quarter: 2016Q1

REPORT INFORMATION
  Report Type: Spontaneous
  Country: US (occurrence: US)
  Receive Date: 20160120
  Receipt Date: 20160120
  Transmission Date: 20160526
  Serious: No
  Sender: FDA-Public Use
  Company Number: US-INCYTE CORPORATION-2015IN004440

PATIENT
  Age: 69 Year
  Sex: Male

DRUGS (38)
  1. DEXAMETHASONE. [Concomitant]
     Active Substance: DEXAMETHASONE
     Dosage: 0.4 MG/ML MIX 240 ML WITH 360 ML STERILE WATER
  2. ALBUTEROL                          /00139501/ [Concomitant]
     Active Substance: ALBUTEROL
     Dosage: 90 MCG/INH; 2 PUFFS TID, PRN
  3. HOMATROPINE [Concomitant]
     Active Substance: HOMATROPINE\HOMATROPINE HYDROBROMIDE
     Dosage: 2%; 1 DROP LEFT EYE QD
  4. ALPHAGAN P [Concomitant]
     Active Substance: BRIMONIDINE TARTRATE
     Dosage: 0.15%; 1 DROP Q8HR
  5. AXIRON [Concomitant]
     Active Substance: TESTOSTERONE
     Dosage: QD
  6. NYSTATIN. [Concomitant]
     Active Substance: NYSTATIN
     Route: 048
  7. OXYCONTIN [Concomitant]
     Active Substance: OXYCODONE HYDROCHLORIDE
     Dosage: 10 MG Q12HR
  8. TIZANIDINE. [Concomitant]
     Active Substance: TIZANIDINE
     Dosage: 4 MG QAM
     Route: 048
  9. JAKAFI [Suspect]
     Active Substance: RUXOLITINIB
     Indication: MYELOFIBROSIS
     Dosage: 5 MG, BID
     Route: 048
     Dates: start: 20150709, end: 20150903
  10. AZITHROMYCIN ANHYDROUS. [Concomitant]
     Active Substance: AZITHROMYCIN ANHYDROUS
     Dosage: 250 MG Q OTHER DAY
     Route: 048
  11. MONTELUKAST [Concomitant]
     Active Substance: MONTELUKAST SODIUM
     Dosage: 10 MG QPM
     Route: 048
  12. ATROPINE. [Concomitant]
     Active Substance: ATROPINE
  13. PANTOPRAZOLE [Concomitant]
     Active Substance: PANTOPRAZOLE SODIUM
     Dosage: 40 MG, BID
  14. IPRATROPIUM [Concomitant]
     Active Substance: IPRATROPIUM
     Dosage: 500 MCG, QID
  15. TRIAMCINOLONE [Concomitant]
     Active Substance: TRIAMCINOLONE
     Dosage: 0.1% TID
  16. LOTEMAX [Concomitant]
     Active Substance: LOTEPREDNOL ETABONATE
     Dosage: 1 DROP BOTH EYES BID
  17. DIPHENHYDRAMINE HYDROCHLORIDE. [Concomitant]
     Active Substance: DIPHENHYDRAMINE HYDROCHLORIDE
  18. MULTIVITAMIN                       /00097801/ [Concomitant]
     Active Substance: VITAMINS
     Dosage: QD
     Route: 048
  19. SYSTANE (HYPROMELLOSE 2910 (4000 MPA.S)) [Concomitant]
     Active Substance: HYPROMELLOSE 2910 (4000 MPA.S)
     Dosage: 1 DROP BOTH EYES BID
  20. FLOVENT [Concomitant]
     Active Substance: FLUTICASONE PROPIONATE
     Dosage: 250 MCG; 2 PUFFS BID
  21. ACTIGALL [Concomitant]
     Active Substance: URSODIOL
     Dosage: 300 MG, BID
     Route: 048
  22. ZANTAC [Concomitant]
     Active Substance: RANITIDINE HYDROCHLORIDE
  23. TIMOLOL. [Concomitant]
     Active Substance: TIMOLOL
     Dosage: 0.5% 1 DROP BOTH EYES BID
  24. PROTONIX [Concomitant]
     Active Substance: PANTOPRAZOLE SODIUM
     Dosage: 40 MG, QD
     Route: 048
  25. ACYCLOVIR                          /00587301/ [Concomitant]
     Active Substance: ACYCLOVIR
     Dosage: 400 MG, BID
     Route: 048
  26. CYCLOSPORINE. [Concomitant]
     Active Substance: CYCLOSPORINE
     Dosage: 0.05%; 1 DROP BOTH EYES Q 12 HRS
  27. DULOXETINE. [Concomitant]
     Active Substance: DULOXETINE
     Route: 048
  28. GAS-X [Concomitant]
     Active Substance: DIMETHICONE
     Dosage: 80 MG
  29. PROAIR HFA [Concomitant]
     Active Substance: ALBUTEROL SULFATE
     Dosage: 2 PUFFS QID
  30. PROBIOTIC                          /06395501/ [Concomitant]
     Active Substance: BIFIDOBACTERIUM ANIMALIS SUBSP. LACTIS
     Dosage: QD
     Route: 048
  31. XANAX [Concomitant]
     Active Substance: ALPRAZOLAM
     Dosage: TID
     Route: 048
  32. LOPERAMIDE [Concomitant]
     Active Substance: LOPERAMIDE
  33. FLOMAX [Concomitant]
     Active Substance: TAMSULOSIN HYDROCHLORIDE
     Dosage: 0.4 MG, QD
     Route: 048
  34. REGLAN [Concomitant]
     Active Substance: METOCLOPRAMIDE HYDROCHLORIDE
     Dosage: 10 MG, TID
     Route: 048
  35. AMLODIPINE [Concomitant]
     Active Substance: AMLODIPINE BESYLATE
     Dosage: 5 MG, QD
     Route: 048
  36. BACITRACIN. [Concomitant]
     Active Substance: BACITRACIN
     Dosage: 500 UNITS/G ; 0.25 INCH LEFT EYE
  37. PENICILLIN V POTASSIUM. [Concomitant]
     Active Substance: PENICILLIN V POTASSIUM
     Dosage: 500 MG, BID
     Route: 048
  38. IMODIUM [Concomitant]
     Active Substance: LOPERAMIDE HYDROCHLORIDE
     Dosage: 2 MG

REACTIONS (23)
  - Skin abrasion [Unknown]
  - White blood cell count increased [Unknown]
  - Dyspnoea [Unknown]
  - Haematocrit decreased [Unknown]
  - Chest pain [Unknown]
  - Adverse drug reaction [Unknown]
  - Transaminases increased [Unknown]
  - Red blood cell count decreased [Unknown]
  - Organising pneumonia [Unknown]
  - Decreased appetite [Unknown]
  - Renal impairment [Unknown]
  - Hepatic function abnormal [Unknown]
  - Gastrooesophageal reflux disease [Unknown]
  - Back pain [Unknown]
  - Fatigue [Unknown]
  - Tachycardia [Unknown]
  - Wrong technique in product usage process [Unknown]
  - Depression [Unknown]
  - Pleural effusion [Unknown]
  - Hypertension [Unknown]
  - Iron overload [Unknown]
  - Abdominal distension [Unknown]
  - Haemoglobin decreased [Unknown]

NARRATIVE: CASE EVENT DATE: 201508
